FAERS Safety Report 10994731 (Version 2)
Quarter: 2015Q2

REPORT INFORMATION
  Report Type: Report from Study
  Country: CA (occurrence: CA)
  Receive Date: 20150407
  Receipt Date: 20150520
  Transmission Date: 20150821
  Serious: Yes (Other)
  Sender: FDA-Public Use
  Company Number: CA-JNJFOC-20150401855

PATIENT
  Age: 40 Year
  Sex: Female
  Weight: 103.6 kg

DRUGS (3)
  1. COVERSYL [Concomitant]
     Active Substance: PERINDOPRIL
     Route: 048
  2. REMICADE [Suspect]
     Active Substance: INFLIXIMAB
     Indication: CROHN^S DISEASE
     Route: 042
     Dates: start: 20080927
  3. IMURAN [Concomitant]
     Active Substance: AZATHIOPRINE
     Route: 048

REACTIONS (2)
  - Breast lump removal [Unknown]
  - Incision site infection [Recovered/Resolved]

NARRATIVE: CASE EVENT DATE: 2015
